FAERS Safety Report 8160809-8 (Version None)
Quarter: 2012Q1

REPORT INFORMATION
  Report Type: 
  Country: None (occurrence: None)
  Receive Date: 20120223
  Receipt Date: 20120217
  Transmission Date: 20120608
  Serious: Yes (Hospitalization)
  Sender: FDA-Public Use
  Company Number: PHHY2012DE014231

PATIENT
  Sex: Female
  Weight: 70 kg

DRUGS (2)
  1. SANDIMMUNE [Suspect]
     Indication: UVEITIS
     Dosage: 3 MG/KG/DAY
     Route: 048
     Dates: start: 20110801, end: 20120201
  2. METHOTREXATE [Concomitant]
     Indication: UVEITIS
     Dosage: 25 MG/WEEK
     Dates: start: 20100101

REACTIONS (1)
  - DEMYELINATION [None]
